FAERS Safety Report 7518759-3 (Version None)
Quarter: 2011Q2

REPORT INFORMATION
  Report Type: 
  Country: None (occurrence: None)
  Receive Date: 20110602
  Receipt Date: 20110526
  Transmission Date: 20111010
  Serious: Yes (Death)
  Sender: FDA-Public Use
  Company Number: PHFR2011GB03291

PATIENT
  Sex: Male

DRUGS (2)
  1. CLOZARIL [Suspect]
     Route: 048
     Dates: start: 20061227
  2. CLOZARIL [Suspect]
     Indication: SCHIZOPHRENIA
     Route: 048
     Dates: start: 19901106

REACTIONS (1)
  - DEATH [None]
